FAERS Safety Report 25671271 (Version 1)
Quarter: 2025Q3

REPORT INFORMATION
  Report Type: Spontaneous
  Country: US (occurrence: US)
  Receive Date: 20250812
  Receipt Date: 20250812
  Transmission Date: 20251020
  Serious: Yes (Death, Hospitalization)
  Sender: MERCK SHARP & DOHME LLC
  Company Number: US-009507513-2317828

PATIENT
  Age: 78 Year
  Sex: Male

DRUGS (10)
  1. SITAGLIPTIN PHOSPHATE [Suspect]
     Active Substance: SITAGLIPTIN PHOSPHATE
     Indication: Diabetes mellitus
     Route: 048
     Dates: start: 2020
  2. JARDIANCE [Concomitant]
     Active Substance: EMPAGLIFLOZIN
  3. ESCITALOPRAM [Concomitant]
     Active Substance: ESCITALOPRAM OXALATE
  4. MONTELUKAST [Concomitant]
     Active Substance: MONTELUKAST
  5. MIRTAZAPINE [Concomitant]
     Active Substance: MIRTAZAPINE
  6. ALBUTEROL SULFATE [Concomitant]
     Active Substance: ALBUTEROL SULFATE
  7. GLIPIZIDE [Concomitant]
     Active Substance: GLIPIZIDE
  8. LOSARTAN [Concomitant]
     Active Substance: LOSARTAN
  9. ATORVASTATIN [Concomitant]
     Active Substance: ATORVASTATIN
  10. AMLODIPINE [Concomitant]
     Active Substance: AMLODIPINE BESYLATE

REACTIONS (4)
  - Sepsis [Fatal]
  - Urinary tract obstruction [Fatal]
  - Hospitalisation [Unknown]
  - Urinary tract infection [Fatal]

NARRATIVE: CASE EVENT DATE: 20250612
